FAERS Safety Report 8525006 (Version 2)
Quarter: 2013Q3

REPORT INFORMATION
  Report Type: Spontaneous
  Country: US (occurrence: US)
  Receive Date: 20120423
  Receipt Date: 20130704
  Transmission Date: 20140515
  Serious: Yes (Hospitalization)
  Sender: FDA-Public Use
  Company Number: US-PFIZER INC-2012096646

PATIENT
  Age: 64 Year
  Sex: Male
  Weight: 122 kg

DRUGS (15)
  1. TIKOSYN [Suspect]
     Indication: ATRIAL FIBRILLATION
     Dosage: 250 UG, 2X/DAY
     Dates: start: 2008
  2. TYLENOL [Concomitant]
     Dosage: 975 MG, 3X/DAY
  3. PRAVASTATIN [Concomitant]
     Dosage: 80 MG, DAILY
  4. POLYETHYLENE GLYCOL [Concomitant]
     Dosage: 17 G, DAILY
  5. OMEPRAZOLE [Concomitant]
     Dosage: 40 MG, 2X/DAY
  6. ROCEPHIN [Concomitant]
     Dosage: 2 G, DAILY
  7. FISH OIL [Concomitant]
     Dosage: 1000 MG, 2X/DAY
  8. LISINOPRIL [Concomitant]
     Dosage: 5 MG, DAILY
  9. METHOCARBAMOL [Concomitant]
     Dosage: 1000 MG, 3X/DAY
  10. COREG [Concomitant]
     Dosage: 50 MG, 2X/DAY
  11. GLIPIZIDE [Concomitant]
     Dosage: 10 MG, 2X/DAY
  12. BUMEX [Concomitant]
     Dosage: 1 MG, 2X/DAY
  13. LANOXIN [Concomitant]
     Dosage: 0.125 MG, DAILY
  14. MAGNESIUM OXIDE [Concomitant]
     Dosage: 400 MG, DAILY
  15. WARFARIN SODIUM [Concomitant]
     Dosage: 10 MG, DAILY

REACTIONS (19)
  - Ventricular failure [Recovering/Resolving]
  - Streptococcal bacteraemia [Recovering/Resolving]
  - Renal failure chronic [Recovering/Resolving]
  - Barrett^s oesophagus [Recovering/Resolving]
  - Dyspnoea [Recovering/Resolving]
  - Nausea [Recovering/Resolving]
  - Cardiomyopathy [Recovering/Resolving]
  - Ejection fraction decreased [Recovering/Resolving]
  - Sleep apnoea syndrome [Recovering/Resolving]
  - Dyslipidaemia [Recovering/Resolving]
  - Hypertension [Recovering/Resolving]
  - Hypothyroidism [Recovering/Resolving]
  - Large intestine polyp [Recovering/Resolving]
  - Haemorrhoids [Recovering/Resolving]
  - Rotator cuff syndrome [Recovering/Resolving]
  - Haematocrit decreased [Unknown]
  - Blood creatinine decreased [Unknown]
  - Blood glucose decreased [Unknown]
  - International normalised ratio increased [Unknown]
